FAERS Safety Report 8797060 (Version 1)
Quarter: 2012Q4

REPORT INFORMATION
  Report Type: 
  Country: US (occurrence: US)
  Receive Date: 20120919
  Receipt Date: 20120919
  Transmission Date: 20130627
  Serious: Yes (Other)
  Sender: FDA-Public Use
  Company Number: US-ELI_LILLY_AND_COMPANY-US201209003465

PATIENT
  Sex: Female

DRUGS (4)
  1. HUMULIN NPH [Suspect]
     Indication: DIABETES MELLITUS
     Dosage: 6 u, each evening
  2. HUMULIN NPH [Suspect]
     Indication: DIABETES MELLITUS
     Dosage: 6 u, each evening
  3. HUMULIN NPH [Suspect]
     Dosage: 6 u, each evening
  4. HUMALOG LISPRO [Suspect]
     Indication: DIABETES MELLITUS
     Dosage: UNK, prn
     Dates: start: 2005, end: 2008

REACTIONS (11)
  - Non-Hodgkin^s lymphoma [Not Recovered/Not Resolved]
  - Gastrointestinal disorder [Unknown]
  - Tardive dyskinesia [Not Recovered/Not Resolved]
  - Dyskinesia [Unknown]
  - Fatigue [Unknown]
  - Fibromyalgia [Not Recovered/Not Resolved]
  - Psychomotor hyperactivity [Unknown]
  - Memory impairment [Unknown]
  - Dysphonia [Unknown]
  - Pain [Unknown]
  - Medication error [Unknown]
